FAERS Safety Report 22001687 (Version 2)
Quarter: 2023Q2

REPORT INFORMATION
  Report Type: Spontaneous
  Country: US (occurrence: US)
  Receive Date: 20230216
  Receipt Date: 20230406
  Transmission Date: 20230721
  Serious: Yes (Hospitalization, Other)
  Sender: FDA-Public Use
  Company Number: US-BRISTOL-MYERS SQUIBB COMPANY-2023-022721

PATIENT
  Age: 89 Year
  Sex: Female

DRUGS (2)
  1. ELIQUIS [Suspect]
     Active Substance: APIXABAN
     Indication: Product used for unknown indication
     Route: 048
  2. ELIQUIS [Suspect]
     Active Substance: APIXABAN
     Route: 048
     Dates: start: 20230216

REACTIONS (5)
  - Cerebrovascular accident [Unknown]
  - Dementia Alzheimer^s type [Unknown]
  - Fall [Unknown]
  - Spinal compression fracture [Unknown]
  - Epistaxis [Unknown]
